FAERS Safety Report 16655744 (Version 3)
Quarter: 2019Q3

REPORT INFORMATION
  Report Type: Report from Study
  Country: BS (occurrence: BS)
  Receive Date: 20190801
  Receipt Date: 20190826
  Transmission Date: 20191004
  Serious: Yes (Death, Hospitalization, Other)
  Sender: FDA-Public Use
  Company Number: PHHY2019BS031709

PATIENT
  Age: 86 Year
  Sex: Female
  Weight: 83 kg

DRUGS (9)
  1. GLIVEC [Suspect]
     Active Substance: IMATINIB MESYLATE
     Dosage: 600 MG, QD
     Route: 048
     Dates: end: 20190515
  2. CRESTOR [Concomitant]
     Active Substance: ROSUVASTATIN CALCIUM
     Indication: PRODUCT USED FOR UNKNOWN INDICATION
     Dosage: 1 UNK, UNK
     Route: 048
     Dates: start: 20180108
  3. GLIVEC [Suspect]
     Active Substance: IMATINIB MESYLATE
     Indication: CHRONIC MYELOID LEUKAEMIA
     Dosage: 300 MG, UNK
     Route: 048
     Dates: start: 20180227
  4. TENORETIC [Concomitant]
     Active Substance: ATENOLOL\CHLORTHALIDONE
     Indication: PRODUCT USED FOR UNKNOWN INDICATION
     Dosage: 1 OT, QD
     Route: 048
     Dates: start: 20170525
  5. LEVOFLOXACIN. [Concomitant]
     Active Substance: LEVOFLOXACIN
     Indication: PRODUCT USED FOR UNKNOWN INDICATION
     Dosage: 750 MG, QD
     Route: 065
  6. NIFEDIPINE. [Concomitant]
     Active Substance: NIFEDIPINE
     Indication: PRODUCT USED FOR UNKNOWN INDICATION
     Dosage: 30 MG, QD
     Route: 048
  7. GLIVEC [Suspect]
     Active Substance: IMATINIB MESYLATE
     Dosage: 400 MG, QD
     Route: 048
  8. TASIGNA [Suspect]
     Active Substance: NILOTINIB
     Indication: CHRONIC MYELOID LEUKAEMIA
     Dosage: 400 MG, BID
     Route: 048
     Dates: start: 20190725, end: 20190809
  9. NEXIUM [Concomitant]
     Active Substance: ESOMEPRAZOLE MAGNESIUM
     Indication: PRODUCT USED FOR UNKNOWN INDICATION
     Dosage: 40 MG, QD
     Route: 048

REACTIONS (30)
  - Leukopenia [Not Recovered/Not Resolved]
  - Malignant neoplasm progression [Unknown]
  - Monocyte count increased [Unknown]
  - Asthenia [Unknown]
  - Decreased appetite [Unknown]
  - Death [Fatal]
  - Malaise [Unknown]
  - Hypokalaemia [Unknown]
  - Lymphocyte count increased [Unknown]
  - Sinus arrhythmia [Unknown]
  - Hypomagnesaemia [Unknown]
  - Splenomegaly [Unknown]
  - Tumour lysis syndrome [Unknown]
  - Leukocytosis [Unknown]
  - Basophil count increased [Unknown]
  - Blood glucose increased [Unknown]
  - Thrombocytopenia [Not Recovered/Not Resolved]
  - Anaemia [Unknown]
  - Early satiety [Unknown]
  - White blood cell count increased [Unknown]
  - Neutrophil count decreased [Unknown]
  - Hypertension [Unknown]
  - Chronic myeloid leukaemia [Unknown]
  - Sepsis [Unknown]
  - Neutrophil count increased [Unknown]
  - Fatigue [Unknown]
  - Eosinophil count decreased [Unknown]
  - Diverticulum intestinal haemorrhagic [Unknown]
  - Pancytopenia [Unknown]
  - Pain [Unknown]

NARRATIVE: CASE EVENT DATE: 20190813
